FAERS Safety Report 9093680 (Version 1)
Quarter: 2013Q1

REPORT INFORMATION
  Report Type: Spontaneous
  Country: US (occurrence: None)
  Receive Date: 20130213
  Receipt Date: 20130213
  Transmission Date: 20140127
  Serious: Yes (Other)
  Sender: FDA-Public Use
  Company Number: None

PATIENT
  Age: 76 Year
  Sex: Male
  Weight: 74.84 kg

DRUGS (1)
  1. CLONIDINE [Suspect]
     Dates: start: 20121204, end: 20121221

REACTIONS (3)
  - Dry mouth [None]
  - Dysphagia [None]
  - Speech disorder [None]
